FAERS Safety Report 4396210-2 (Version None)
Quarter: 2004Q3

REPORT INFORMATION
  Report Type: 
  Country: None (occurrence: None)
  Receive Date: 20040708
  Receipt Date: 20040625
  Transmission Date: 20050211
  Serious: Yes (Death)
  Sender: FDA-Public Use
  Company Number: 2004-BP-04066BR

PATIENT
  Age: 82 Year
  Sex: Female

DRUGS (4)
  1. SPIRIVA [Suspect]
     Indication: CHRONIC OBSTRUCTIVE AIRWAYS DISEASE
     Dosage: 18 ,CG )18 MCG, 1 KAI QAD); IH
     Route: 055
  2. OXYGEN (OXYGEN) (NR) [Concomitant]
  3. FORASEQ (FORASEQ) (NR) [Concomitant]
  4. AMINOFILINA (NR) [Concomitant]

REACTIONS (1)
  - DEATH [None]
